FAERS Safety Report 10697296 (Version 1)
Quarter: 2015Q1

REPORT INFORMATION
  Report Type: Spontaneous
  Country: US (occurrence: None)
  Receive Date: 20150107
  Receipt Date: 20150107
  Transmission Date: 20150721
  Serious: No
  Sender: FDA-Public Use
  Company Number: None

PATIENT
  Age: 48 Year
  Sex: Female
  Weight: 75.3 kg

DRUGS (1)
  1. NORTRIPTYLINE [Suspect]
     Active Substance: NORTRIPTYLINE
     Indication: MAJOR DEPRESSION
     Dosage: 1-2 AT BEDTIME TAKEN BY MOUTH
     Route: 048
     Dates: start: 20141031, end: 20141208

REACTIONS (8)
  - Dry mouth [None]
  - Migraine [None]
  - Oral mucosal blistering [None]
  - Gastrooesophageal reflux disease [None]
  - Nervousness [None]
  - Nightmare [None]
  - Hallucination, visual [None]
  - Feeling abnormal [None]

NARRATIVE: CASE EVENT DATE: 20141031
